FAERS Safety Report 7349676-X (Version None)
Quarter: 2011Q1

REPORT INFORMATION
  Report Type: 
  Country: None (occurrence: None)
  Receive Date: 20110218
  Receipt Date: 20101102
  Transmission Date: 20110831
  Serious: Yes (Hospitalization)
  Sender: FDA-Public Use
  Company Number: US-IGSA-IG725

PATIENT
  Age: 69 Year
  Sex: Male
  Weight: 86.4 kg

DRUGS (2)
  1. FLEBOGAMMA 5% DIF [Suspect]
  2. FLEBOGAMMA 5% DIF [Suspect]
     Indication: POLYNEUROPATHY
     Dosage: 50 G IV
     Route: 042
     Dates: start: 20100923, end: 20100923

REACTIONS (2)
  - HAEMATURIA [None]
  - RENAL FAILURE ACUTE [None]
